FAERS Safety Report 23361189 (Version 1)
Quarter: 2024Q1

REPORT INFORMATION
  Report Type: Spontaneous
  Country: US (occurrence: None)
  Receive Date: 20240102
  Receipt Date: 20240102
  Transmission Date: 20240410
  Serious: Yes (Death)
  Sender: FDA-Public Use
  Company Number: None

PATIENT
  Age: 57 Year
  Sex: Female

DRUGS (11)
  1. CAPECITABINE [Suspect]
     Active Substance: CAPECITABINE
     Indication: Breast cancer female
     Route: 048
     Dates: start: 20201208
  2. BLACK COHOSPH CAP 540MG [Concomitant]
  3. CALCIUM [Concomitant]
     Active Substance: CALCIUM
  4. CELEXA TAB [Concomitant]
  5. LETROZOLE TAB 2.5MG [Concomitant]
  6. MULTIVITAMIN TAB ADULTS [Concomitant]
  7. PRIMROSE OIL CAP CRANBERR [Concomitant]
  8. URSODIOL TAB [Concomitant]
  9. VITAMIN B12 TAB [Concomitant]
  10. VITAMIN C TAB 250MG [Concomitant]
  11. VITAMIN D TAB 1000UNIT [Concomitant]

REACTIONS (1)
  - Death [None]

NARRATIVE: CASE EVENT DATE: 20231230
